FAERS Safety Report 5512401-9 (Version None)
Quarter: 2007Q4

REPORT INFORMATION
  Report Type: 
  Country: None (occurrence: None)
  Receive Date: 20071107
  Receipt Date: 20071024
  Transmission Date: 20080405
  Serious: Yes (Other)
  Sender: FDA-Public Use
  Company Number: MEDI-0006118

PATIENT
  Age: 19 Month
  Sex: Male

DRUGS (9)
  1. SYNAGIS [Suspect]
     Indication: RESPIRATORY SYNCYTIAL VIRUS INFECTION
     Dosage: 100 MG, INTRAMUSCULAR; 80 MG INTRAMUSCULAR ; 83 MG INTRAMUSCULAR ; 87 MG INTRAMUSCULAR ; 95 MG INTRA
     Route: 030
     Dates: start: 20061026, end: 20070215
  2. SYNAGIS [Suspect]
     Indication: RESPIRATORY SYNCYTIAL VIRUS INFECTION
     Dosage: 100 MG, INTRAMUSCULAR; 80 MG INTRAMUSCULAR ; 83 MG INTRAMUSCULAR ; 87 MG INTRAMUSCULAR ; 95 MG INTRA
     Route: 030
     Dates: start: 20061026
  3. SYNAGIS [Suspect]
     Indication: RESPIRATORY SYNCYTIAL VIRUS INFECTION
     Dosage: 100 MG, INTRAMUSCULAR; 80 MG INTRAMUSCULAR ; 83 MG INTRAMUSCULAR ; 87 MG INTRAMUSCULAR ; 95 MG INTRA
     Route: 030
     Dates: start: 20061124
  4. SYNAGIS [Suspect]
     Indication: RESPIRATORY SYNCYTIAL VIRUS INFECTION
     Dosage: 100 MG, INTRAMUSCULAR; 80 MG INTRAMUSCULAR ; 83 MG INTRAMUSCULAR ; 87 MG INTRAMUSCULAR ; 95 MG INTRA
     Route: 030
     Dates: start: 20061221
  5. SYNAGIS [Suspect]
     Indication: RESPIRATORY SYNCYTIAL VIRUS INFECTION
     Dosage: 100 MG, INTRAMUSCULAR; 80 MG INTRAMUSCULAR ; 83 MG INTRAMUSCULAR ; 87 MG INTRAMUSCULAR ; 95 MG INTRA
     Route: 030
     Dates: start: 20070118
  6. FUROSEMIDE [Concomitant]
  7. SPIRONOLACTONE [Concomitant]
  8. DIGOXIN [Concomitant]
  9. ENALAPRIL MALEATE [Concomitant]

REACTIONS (2)
  - BRONCHITIS [None]
  - RESPIRATORY SYNCYTIAL VIRUS INFECTION [None]
